FAERS Safety Report 22908852 (Version 5)
Quarter: 2023Q4

REPORT INFORMATION
  Report Type: Spontaneous
  Country: ES (occurrence: ES)
  Receive Date: 20230905
  Receipt Date: 20231010
  Transmission Date: 20240110
  Serious: Yes (Other)
  Sender: FDA-Public Use
  Company Number: ES-009507513-2309ESP000449

PATIENT
  Age: 48 Year
  Sex: Male

DRUGS (5)
  1. KEYTRUDA [Suspect]
     Active Substance: PEMBROLIZUMAB
     Indication: Adenocarcinoma of colon
     Dosage: THREE-WEEKLY
     Dates: start: 20200909
  2. LAMOTRIGINE [Concomitant]
     Active Substance: LAMOTRIGINE
     Dosage: 100 MILLIGRAM, BID
  3. ZONISAMIDE [Concomitant]
     Active Substance: ZONISAMIDE
     Dosage: 100 MILLIGRAM, QD
  4. IRON [Concomitant]
     Active Substance: IRON
     Indication: Iron deficiency anaemia
     Dosage: 100 MILLIGRAM, QD
     Route: 048
  5. TINZAPARIN [Concomitant]
     Active Substance: TINZAPARIN
     Indication: Splenic vein thrombosis
     Dosage: 10000 INTERNATIONAL UNIT, QD

REACTIONS (4)
  - Tumour pseudoprogression [Recovered/Resolved]
  - Dermatitis [Unknown]
  - Pruritus [Unknown]
  - Product use in unapproved indication [Unknown]

NARRATIVE: CASE EVENT DATE: 20200909
